FAERS Safety Report 24631470 (Version 1)
Quarter: 2024Q4

REPORT INFORMATION
  Report Type: Spontaneous
  Country: US (occurrence: None)
  Receive Date: 20241118
  Receipt Date: 20241118
  Transmission Date: 20250114
  Serious: Yes (Other)
  Sender: Public
  Company Number: None

PATIENT
  Sex: Female

DRUGS (1)
  1. BOTOX [Suspect]
     Active Substance: ONABOTULINUMTOXINA
     Indication: Migraine
     Dosage: FREQ: INJECT UP TO 200 UNITS IN THE MUSCLE TO HEAD AND NECK EVERY 12 WEEKS
     Dates: start: 20240522

REACTIONS (1)
  - Diverticulitis [None]
